FAERS Safety Report 7964618-1 (Version None)
Quarter: 2011Q4

REPORT INFORMATION
  Report Type: 
  Country: None (occurrence: None)
  Receive Date: 20111205
  Receipt Date: 20111205
  Transmission Date: 20120403
  Serious: Yes (Hospitalization)
  Sender: FDA-Public Use
  Company Number: None

PATIENT
  Sex: Male
  Weight: 68.5 kg

DRUGS (1)
  1. TAXOTERE [Suspect]
     Dosage: 269 MG

REACTIONS (2)
  - PNEUMONIA [None]
  - HYPOXIA [None]
